FAERS Safety Report 6767092-6 (Version None)
Quarter: 2010Q2

REPORT INFORMATION
  Report Type: 
  Country: None (occurrence: None)
  Receive Date: 20100614
  Receipt Date: 20100603
  Transmission Date: 20101027
  Serious: Yes (Other)
  Sender: FDA-Public Use
  Company Number: US-CELGENEUS-163-20785-08010438

PATIENT
  Sex: Female

DRUGS (4)
  1. THALOMID [Suspect]
     Indication: MULTIPLE MYELOMA
     Route: 048
     Dates: start: 20071201, end: 20080101
  2. THALOMID [Suspect]
     Route: 048
     Dates: start: 20060901, end: 20071101
  3. THALOMID [Suspect]
     Route: 048
     Dates: start: 20080205
  4. THALOMID [Suspect]
     Route: 048
     Dates: start: 20080901

REACTIONS (1)
  - BLOOD HUMAN CHORIONIC GONADOTROPIN INCREASED [None]
